FAERS Safety Report 8394581-3 (Version None)
Quarter: 2012Q2

REPORT INFORMATION
  Report Type: 
  Country: None (occurrence: None)
  Receive Date: 20120525
  Receipt Date: 20120525
  Transmission Date: 20120825
  Serious: Yes (Disabling)
  Sender: FDA-Public Use
  Company Number: None

PATIENT
  Age: 28 Year
  Sex: Female
  Weight: 113.3993 kg

DRUGS (1)
  1. AVELOX [Suspect]
     Indication: POST PROCEDURAL INFECTION
     Dosage: 400 MG TWICE PER DAY PO
     Route: 048
     Dates: start: 20111005, end: 20111010

REACTIONS (4)
  - SENSORY DISTURBANCE [None]
  - MYALGIA [None]
  - NEURALGIA [None]
  - MOVEMENT DISORDER [None]
